FAERS Safety Report 6574573-7 (Version None)
Quarter: 2010Q1

REPORT INFORMATION
  Report Type: 
  Country: None (occurrence: None)
  Receive Date: 20100209
  Receipt Date: 20100128
  Transmission Date: 20100710
  Serious: Yes (Hospitalization)
  Sender: FDA-Public Use
  Company Number: US-RANBAXY-2010US-30858

PATIENT

DRUGS (3)
  1. VERAPAMIL TABLETS BP 40MG [Suspect]
     Indication: DRUG USE FOR UNKNOWN INDICATION
     Dosage: 60 TABLETS OF 40 MG , UNK
     Route: 065
  2. TENORETIC 100 [Suspect]
     Indication: HYPERTENSION
     Dosage: 100/25 MG, QD
     Route: 065
  3. ETHANOL [Concomitant]
     Indication: DRUG USE FOR UNKNOWN INDICATION
     Dosage: 9 UNITS, UNK
     Route: 065

REACTIONS (3)
  - CARDIAC ARREST [None]
  - DRUG HALF-LIFE INCREASED [None]
  - OVERDOSE [None]
